FAERS Safety Report 10956512 (Version 1)
Quarter: 2015Q1

REPORT INFORMATION
  Report Type: Spontaneous
  Country: GB (occurrence: None)
  Receive Date: 20150324
  Receipt Date: 20150324
  Transmission Date: 20150721
  Serious: Yes (Other)
  Sender: FDA-Public Use
  Company Number: 20142667

PATIENT
  Sex: Female

DRUGS (2)
  1. ISOPROPANOL [Suspect]
     Active Substance: ISOPROPANOLAMINE
  2. METOJECT (METHOTREXATE DISODIUM) [Suspect]
     Active Substance: METHOTREXATE SODIUM

REACTIONS (6)
  - Asthenia [None]
  - Ear pain [None]
  - Infection [None]
  - Oropharyngeal pain [None]
  - Pyrexia [None]
  - Malaise [None]
